FAERS Safety Report 4578304-1 (Version None)
Quarter: 2005Q1

REPORT INFORMATION
  Report Type: 
  Country: None (occurrence: None)
  Receive Date: 20050204
  Receipt Date: 20050204
  Transmission Date: 20050727
  Serious: Yes (Hospitalization)
  Sender: FDA-Public Use
  Company Number: None

PATIENT
  Age: 45 Year

DRUGS (4)
  1. DIOVAN [Suspect]
     Indication: ANGIOPATHY
     Dosage: 160 MG DAILY PO
     Route: 048
     Dates: start: 20040724
  2. DIOVAN [Suspect]
     Indication: PROPHYLAXIS
     Dosage: 160 MG DAILY PO
     Route: 048
     Dates: start: 20040724
  3. CPAP MACHINE [Concomitant]
  4. LEVOTHYROXINE [Concomitant]

REACTIONS (3)
  - ARTHRALGIA [None]
  - CHEST PAIN [None]
  - ELECTROCARDIOGRAM ABNORMAL [None]
